FAERS Safety Report 8983737 (Version 1)
Quarter: 2012Q4

REPORT INFORMATION
  Report Type: Report from Study
  Country: DK (occurrence: DK)
  Receive Date: 20121224
  Receipt Date: 20121224
  Transmission Date: 20130627
  Serious: Yes (Hospitalization)
  Sender: FDA-Public Use
  Company Number: DK-ROCHE-1152574

PATIENT

DRUGS (3)
  1. CAPECITABINE [Suspect]
     Indication: GASTRIC CANCER
     Route: 065
     Dates: start: 20100118
  2. DOCETAXEL [Suspect]
     Indication: GASTRIC CANCER
     Route: 065
  3. ELOXATIN [Suspect]
     Indication: GASTRIC CANCER
     Route: 065

REACTIONS (1)
  - Oesophageal obstruction [Recovered/Resolved]
